FAERS Safety Report 5706584-5 (Version None)
Quarter: 2008Q2

REPORT INFORMATION
  Report Type: 
  Country: None (occurrence: None)
  Receive Date: 20080414
  Receipt Date: 20080401
  Transmission Date: 20081010
  Serious: Yes (Death, Hospitalization, Other)
  Sender: FDA-Public Use
  Company Number: 028-21880-08040328

PATIENT
  Sex: 0

DRUGS (2)
  1. REVLIMID [Suspect]
     Indication: MULTIPLE MYELOMA
     Dosage: 10 MG, DAYS 1-21 OF 28 DAYS CYCLE, ORAL
     Route: 048
  2. MELPHALAN      (MELPHALAN) [Suspect]
     Indication: MULTIPLE MYELOMA
     Dosage: 9 MG/M2, DAYS 1-4,

REACTIONS (5)
  - BONE MARROW FAILURE [None]
  - FEBRILE NEUTROPENIA [None]
  - HALLUCINATION [None]
  - PULMONARY OEDEMA [None]
  - SEPSIS [None]
